FAERS Safety Report 9803211 (Version 2)
Quarter: 2014Q1

REPORT INFORMATION
  Report Type: Spontaneous
  Country: US (occurrence: US)
  Receive Date: 20140108
  Receipt Date: 20140127
  Transmission Date: 20141002
  Serious: No
  Sender: FDA-Public Use
  Company Number: US-PFIZER INC-2014001901

PATIENT
  Age: 52 Year
  Sex: Male

DRUGS (2)
  1. SUTENT [Suspect]
     Dosage: 37.5 MG (25 MG PLUS 12.5 MG), DAILY
     Route: 048
     Dates: start: 20130923
  2. GLUCOSAMINE [Concomitant]
     Dosage: 1500 MG, 2X/DAY

REACTIONS (3)
  - Asthenia [Unknown]
  - Hypoaesthesia [Unknown]
  - Abdominal pain upper [Unknown]
